FAERS Safety Report 18211555 (Version 1)
Quarter: 2020Q3

REPORT INFORMATION
  Report Type: Spontaneous
  Country: FR (occurrence: FR)
  Receive Date: 20200831
  Receipt Date: 20200831
  Transmission Date: 20201103
  Serious: Yes (Hospitalization)
  Sender: FDA-Public Use
  Company Number: FR-TEVA-2020-FR-1820850

PATIENT
  Age: 75 Year
  Sex: Male
  Weight: 86 kg

DRUGS (13)
  1. TOUJEO [Concomitant]
     Active Substance: INSULIN GLARGINE
     Dosage: 14 IU
     Route: 058
  2. PREGABALINE [Concomitant]
     Active Substance: PREGABALIN
     Dosage: 75MG
     Route: 048
  3. ATENOLOL. [Suspect]
     Active Substance: ATENOLOL
     Indication: HYPERTENSION
     Dosage: 50MG
     Route: 048
     Dates: start: 20191218
  4. TRULICITY [Concomitant]
     Active Substance: DULAGLUTIDE
     Dosage: 1.5MG
     Route: 058
  5. ASPEGIC [Concomitant]
     Dosage: 100MG
     Route: 048
  6. BETAXOLOL (CHLORHYDRATE DE) [Suspect]
     Active Substance: BETAXOLOL HYDROCHLORIDE
     Dosage: 20MG
     Route: 048
     Dates: start: 20200117, end: 20200616
  7. DULOXETINE (CHLORHYDRATE DE) [Concomitant]
     Active Substance: DULOXETINE
     Dosage: 30MG
     Route: 048
  8. OMEPRAZOLE SODIQUE [Concomitant]
     Dosage: 20MG
     Route: 048
  9. METFORMINE [Concomitant]
     Active Substance: METFORMIN HYDROCHLORIDE
     Dosage: 1500MG
     Route: 048
  10. LEVOTHYROX 100 MICROGRAMMES, COMPRIME SECABLE [Concomitant]
     Active Substance: LEVOTHYROXINE
     Dosage: 100MCG
     Route: 048
  11. BROMAZEPAM [Concomitant]
     Active Substance: BROMAZEPAM
     Dosage: 3MG
     Route: 048
  12. LERCANIDIPINE (CHLORHYDRATE DE) [Concomitant]
     Active Substance: LERCANIDIPINE HYDROCHLORIDE
     Dosage: 10MG
     Route: 048
  13. ROSUVASTATINE CALCIQUE [Concomitant]
     Dosage: 5MG
     Route: 048

REACTIONS (3)
  - Wrong drug [Recovered/Resolved]
  - Product dispensing error [Recovered/Resolved]
  - Fall [Recovering/Resolving]

NARRATIVE: CASE EVENT DATE: 20200117
